FAERS Safety Report 6141491-8 (Version None)
Quarter: 2009Q2

REPORT INFORMATION
  Report Type: 
  Country: None (occurrence: None)
  Receive Date: 20090402
  Receipt Date: 20090325
  Transmission Date: 20091009
  Serious: Yes (Other)
  Sender: FDA-Public Use
  Company Number: PT-TEVA-189501ISR

PATIENT
  Sex: Male
  Weight: 34 kg

DRUGS (1)
  1. VINCRISTINE [Suspect]
     Indication: HAEMANGIOMA
     Route: 042
     Dates: start: 20090316, end: 20090316

REACTIONS (1)
  - PHLEBITIS [None]
